FAERS Safety Report 8594937-X (Version None)
Quarter: 2012Q2

REPORT INFORMATION
  Report Type: 
  Country: None (occurrence: None)
  Receive Date: 20120423
  Receipt Date: 20100527
  Transmission Date: 20120825
  Serious: Yes (Other)
  Sender: FDA-Public Use
  Company Number: PHHY2010US35112

PATIENT
  Age: 70 Year
  Sex: Male
  Weight: 84.2 kg

DRUGS (1)
  1. EXJADE [Suspect]
     Indication: MYELODYSPLASTIC SYNDROME
     Dosage: 500 MG,  ORAL
     Route: 048

REACTIONS (1)
  - DIARRHOEA [None]
